FAERS Safety Report 4914043-2 (Version None)
Quarter: 2006Q1

REPORT INFORMATION
  Report Type: 
  Country: None (occurrence: None)
  Receive Date: 20060206
  Receipt Date: 20060123
  Transmission Date: 20060701
  Serious: Yes (Hospitalization)
  Sender: FDA-Public Use
  Company Number: 2006BH001289

PATIENT
  Age: 63 Year
  Sex: Female

DRUGS (1)
  1. IGIV GENERIC (IMMUNOGLOBULIN HUMAN NORMAL) [Suspect]
     Dosage: SEE IMAGE

REACTIONS (5)
  - BLOOD PRESSURE INCREASED [None]
  - DRUG RESISTANCE [None]
  - PULMONARY EMBOLISM [None]
  - THROMBOCYTOPENIA [None]
  - THROMBOPHLEBITIS [None]
